FAERS Safety Report 16222820 (Version 2)
Quarter: 2019Q2

REPORT INFORMATION
  Report Type: Spontaneous
  Country: JP (occurrence: JP)
  Receive Date: 20190422
  Receipt Date: 20190613
  Transmission Date: 20190711
  Serious: Yes (Life-Threatening, Hospitalization)
  Sender: FDA-Public Use
  Company Number: JP-ELI_LILLY_AND_COMPANY-JP201904009376

PATIENT
  Sex: Female
  Weight: 57 kg

DRUGS (3)
  1. CYRAMZA [Suspect]
     Active Substance: RAMUCIRUMAB
     Indication: LUNG ADENOCARCINOMA STAGE IV
     Dosage: 440 MG, CYCLICAL
     Route: 041
     Dates: start: 20181130, end: 20190205
  2. DOCETAXEL. [Suspect]
     Active Substance: DOCETAXEL
     Indication: LUNG ADENOCARCINOMA STAGE IV
     Dosage: 75 MG, CYCLICAL
     Route: 041
     Dates: start: 20181130, end: 20190205
  3. G LASTA [Concomitant]
     Active Substance: PEGFILGRASTIM
     Indication: PROPHYLAXIS
     Dosage: 36 MG
     Route: 065
     Dates: start: 20181201, end: 20190206

REACTIONS (4)
  - Brain abscess [Not Recovered/Not Resolved]
  - Bone marrow failure [Unknown]
  - Otitis media [Unknown]
  - Physical deconditioning [Unknown]

NARRATIVE: CASE EVENT DATE: 20190210
